FAERS Safety Report 19507116 (Version 1)
Quarter: 2021Q3

REPORT INFORMATION
  Report Type: Spontaneous
  Country: US (occurrence: US)
  Receive Date: 20210708
  Receipt Date: 20210708
  Transmission Date: 20211014
  Serious: Yes (Hospitalization)
  Sender: FDA-Public Use
  Company Number: None

PATIENT
  Age: 75 Year
  Sex: Male

DRUGS (2)
  1. OXYBUTYNIN (OXYBUTYNIN CL 15MG TAB, SA) [Suspect]
     Active Substance: OXYBUTYNIN
     Dates: start: 20200312, end: 20210621
  2. TROSPIUM (TROSPIUM CL 20MG TAB) [Suspect]
     Active Substance: TROSPIUM CHLORIDE
     Dates: start: 20200131, end: 20210621

REACTIONS (4)
  - Diplopia [None]
  - Parkinson^s disease [None]
  - Fall [None]
  - Orthostatic hypotension [None]

NARRATIVE: CASE EVENT DATE: 20210610
